FAERS Safety Report 16221894 (Version 14)
Quarter: 2022Q4

REPORT INFORMATION
  Report Type: Report from Study
  Country: US (occurrence: US)
  Receive Date: 20190422
  Receipt Date: 20221013
  Transmission Date: 20230112
  Serious: Yes (Hospitalization)
  Sender: FDA-Public Use
  Company Number: US-SA-2018SA077204

PATIENT
  Age: 71 Year
  Sex: Female
  Weight: 68.04 kg

DRUGS (22)
  1. ALEMTUZUMAB [Suspect]
     Active Substance: ALEMTUZUMAB
     Indication: Relapsing multiple sclerosis
     Dosage: 12 MG,QD
     Route: 041
     Dates: start: 20171218, end: 20171222
  2. AMANTADINE [Concomitant]
     Active Substance: AMANTADINE
     Indication: Multiple sclerosis
     Dosage: 200 MG, UNK
     Route: 048
     Dates: start: 20170817, end: 20180624
  3. AMANTADINE [Concomitant]
     Active Substance: AMANTADINE
     Dosage: 100 MG, UNK
     Route: 048
     Dates: start: 20180624, end: 20180910
  4. AMANTADINE [Concomitant]
     Active Substance: AMANTADINE
     Dosage: 200 MG, UNK
     Route: 048
     Dates: start: 20180910
  5. BACLOFEN [Concomitant]
     Active Substance: BACLOFEN
     Indication: Multiple sclerosis
     Dosage: 30 MG, UNK
     Route: 048
     Dates: start: 2010
  6. BOTOX [Concomitant]
     Active Substance: ONABOTULINUMTOXINA
     Indication: Multiple sclerosis
     Dosage: 400 UNK, Q12W
     Route: 030
     Dates: start: 20110325
  7. CITRUCEL [Concomitant]
     Active Substance: METHYLCELLULOSE (4000 MPA.S)
     Indication: Prophylaxis
     Dosage: 1000 MG, UNK
     Route: 048
  8. CYMBALTA [Concomitant]
     Active Substance: DULOXETINE HYDROCHLORIDE
     Indication: Depression
     Dosage: 90 MG, UNK
     Route: 048
  9. FISH OIL [Concomitant]
     Active Substance: FISH OIL
     Indication: Prophylaxis
     Dosage: 1000 MG, UNK
     Route: 048
  10. FUROSEMIDE [Concomitant]
     Active Substance: FUROSEMIDE
     Indication: Multiple sclerosis
     Dosage: 20 MG, UNK
     Route: 048
  11. IRON [Concomitant]
     Active Substance: IRON
     Indication: Prophylaxis
     Dosage: 325 MG, UNK
     Route: 048
  12. MINERALS\VITAMINS [Concomitant]
     Active Substance: MINERALS\VITAMINS
     Indication: Cataract
     Dosage: 2 DF, UNK
     Route: 048
     Dates: start: 201707
  13. VITAMIN B12 [Concomitant]
     Active Substance: CYANOCOBALAMIN
     Indication: Vitamin B12 deficiency
     Dosage: 1000 UG, UNK
     Route: 048
     Dates: start: 20160412
  14. VITAMIN D3 [Concomitant]
     Active Substance: CHOLECALCIFEROL
     Indication: Prophylaxis
     Dosage: 5000 IU, UNK
     Route: 048
     Dates: start: 2010
  15. WARFARIN [Concomitant]
     Active Substance: WARFARIN
     Indication: Immune thrombocytopenia
     Dosage: 4 MG, UNK
     Route: 048
     Dates: start: 2004
  16. XALATAN [Concomitant]
     Active Substance: LATANOPROST
     Indication: Cataract
     Dosage: 1 DROP, UNK
     Route: 047
     Dates: start: 201707
  17. HYDROXYZINE HYDROCHLORIDE [Concomitant]
     Active Substance: HYDROXYZINE HYDROCHLORIDE
     Indication: Prophylaxis
     Dosage: 50 MG, UNK
     Route: 048
     Dates: start: 20171212, end: 20171229
  18. RANITIDINE [Concomitant]
     Active Substance: RANITIDINE
     Indication: Prophylaxis
     Dosage: 150 MG, UNK
     Route: 048
     Dates: start: 20171212, end: 20171221
  19. MEPERIDINE HYDROCHLORIDE [Concomitant]
     Active Substance: MEPERIDINE HYDROCHLORIDE
     Indication: Prophylaxis
     Dosage: 50 MG, UNK
     Route: 048
     Dates: start: 20171218, end: 20171229
  20. VALACYCLOVIR HYDROCHLORIDE [Concomitant]
     Active Substance: VALACYCLOVIR HYDROCHLORIDE
     Indication: Prophylaxis
     Dosage: 1000 MG, UNK
     Route: 048
     Dates: start: 20171212
  21. ACETAMINOPHEN [Concomitant]
     Active Substance: ACETAMINOPHEN
     Indication: Prophylaxis
     Dosage: 1000 MG, UNK
     Route: 048
     Dates: start: 20171218, end: 20171222
  22. SODIUM CHLORIDE [Concomitant]
     Active Substance: SODIUM CHLORIDE
     Indication: Prophylaxis
     Dosage: 100 ML, UNK
     Route: 042
     Dates: start: 20171218, end: 20171222

REACTIONS (5)
  - Immune thrombocytopenia [Recovered/Resolved]
  - Dyspnoea [Recovered/Resolved]
  - Tachycardia [Recovered/Resolved]
  - Rotator cuff syndrome [Recovered/Resolved]
  - Hydronephrosis [Not Recovered/Not Resolved]

NARRATIVE: CASE EVENT DATE: 20171225
